FAERS Safety Report 4579898-2 (Version None)
Quarter: 2005Q1

REPORT INFORMATION
  Report Type: 
  Country: None (occurrence: None)
  Receive Date: 20050210
  Receipt Date: 20050128
  Transmission Date: 20050727
  Serious: Yes (Hospitalization)
  Sender: FDA-Public Use
  Company Number: 2005020956

PATIENT
  Sex: Female

DRUGS (3)
  1. CABERGOLINE [Suspect]
     Indication: PARKINSON'S DISEASE
     Dosage: 4 MG (4 MG,  1 IN 1 D), ORAL
     Route: 048
     Dates: end: 20041201
  2. MADOPAR (BENSERAZIDE HYDROCHLORIDE, LEVODOPA) [Concomitant]
  3. MESALAMINE [Concomitant]

REACTIONS (4)
  - CONDITION AGGRAVATED [None]
  - MITRAL VALVE INCOMPETENCE [None]
  - ORTHOPNOEA [None]
  - PARKINSON'S DISEASE [None]
